FAERS Safety Report 15415514 (Version 13)
Quarter: 2020Q3

REPORT INFORMATION
  Report Type: Report from Study
  Country: None (occurrence: NL)
  Receive Date: 20180922
  Receipt Date: 20200923
  Transmission Date: 20201102
  Serious: Yes (Other)
  Sender: FDA-Public Use
  Company Number: NL-ABBVIE-17K-114-2157303-00

PATIENT
  Age: 75 Year
  Sex: Male
  Weight: 77 kg

DRUGS (18)
  1. DUODOPA [Suspect]
     Active Substance: CARBIDOPA\LEVODOPA
     Dosage: MD: 12.0, CD: 4.9, ED: 4.5 DURING THE DAY
     Route: 050
     Dates: start: 20171125
  2. DUODOPA [Suspect]
     Active Substance: CARBIDOPA\LEVODOPA
     Dosage: CONTINUOUS DOSE: INCREASED BY 0.1 ML
     Route: 050
     Dates: start: 201803
  3. DUODOPA [Suspect]
     Active Substance: CARBIDOPA\LEVODOPA
     Dosage: MD: 12.0, CD: 4.8, ED: 4.5
     Route: 050
  4. DUODOPA [Suspect]
     Active Substance: CARBIDOPA\LEVODOPA
     Dosage: MD: 12.0 ML, CD: 4.6 ML, ED: 5.5 ML  16 HOURS THERAPY
     Route: 050
  5. ASCAL [Concomitant]
     Indication: PRODUCT USED FOR UNKNOWN INDICATION
     Route: 048
     Dates: start: 20171125
  6. LEVODOPA/CARBIDOPA [Concomitant]
     Active Substance: CARBIDOPA\LEVODOPA
     Dosage: 250  1?2 TIMES AS NEEDED
     Route: 048
     Dates: start: 20171125
  7. DUODOPA [Suspect]
     Active Substance: CARBIDOPA\LEVODOPA
     Dosage: MORNING DOSE: 8.0, CONTINUOUS DOSE: 4.6, EXTRA DOSE: 4.5
     Route: 050
     Dates: start: 201711, end: 201711
  8. ASCAL [Concomitant]
     Dosage: 1?2 TIMES AS NEEDED 250
     Route: 048
     Dates: start: 20171125
  9. LEVODOPA/CARBIDOPA [Concomitant]
     Active Substance: CARBIDOPA\LEVODOPA
     Indication: PRODUCT USED FOR UNKNOWN INDICATION
     Dosage: 250  1?2 TIMES IF NEEDED
     Route: 048
     Dates: start: 20171125
  10. DUODOPA [Suspect]
     Active Substance: CARBIDOPA\LEVODOPA
     Dosage: MD 12.0 CD 4.8 ED 5.5
     Route: 050
  11. NEUPRO [Concomitant]
     Active Substance: ROTIGOTINE
     Indication: PRODUCT USED FOR UNKNOWN INDICATION
     Dosage: REDUCED
  12. DUODOPA [Suspect]
     Active Substance: CARBIDOPA\LEVODOPA
     Indication: PARKINSON^S DISEASE
     Dosage: MD: 7.0, CD: 4.0, ED: 4.5
     Route: 050
     Dates: start: 20171031, end: 2017
  13. DUODOPA [Suspect]
     Active Substance: CARBIDOPA\LEVODOPA
     Dosage: MORNING DOSE: 8.0, CONTINUOUS DOSE: 4.9, EXTRA DOSE: 4.5
     Route: 050
     Dates: start: 201711, end: 201711
  14. DUODOPA [Suspect]
     Active Substance: CARBIDOPA\LEVODOPA
     Dosage: MORNING DOSE: 12.0,
     Route: 050
     Dates: start: 20180310, end: 2018
  15. DUODOPA [Suspect]
     Active Substance: CARBIDOPA\LEVODOPA
     Dosage: EXTRA DOSE IS INCREASED TO 5.5 ML
     Route: 050
  16. SINEMET [Concomitant]
     Active Substance: CARBIDOPA\LEVODOPA
     Indication: PRODUCT USED FOR UNKNOWN INDICATION
  17. DUODOPA [Suspect]
     Active Substance: CARBIDOPA\LEVODOPA
     Dosage: MORNING DOSE: 8.0, CONTINUOUS DOSE: 4.3, EXTRA DOSE: 4.5
     Route: 050
     Dates: start: 201711, end: 201711
  18. DUODOPA [Suspect]
     Active Substance: CARBIDOPA\LEVODOPA
     Dosage: MORNING DOSE: 11.0 ML
     Route: 050

REACTIONS (43)
  - Restless legs syndrome [Not Recovered/Not Resolved]
  - Tension [Not Recovered/Not Resolved]
  - Decreased appetite [Recovered/Resolved]
  - Bradykinesia [Not Recovered/Not Resolved]
  - Sleep apnoea syndrome [Recovered/Resolved]
  - Fatigue [Not Recovered/Not Resolved]
  - Bradykinesia [Unknown]
  - Musculoskeletal stiffness [Not Recovered/Not Resolved]
  - Abnormal dreams [Not Recovered/Not Resolved]
  - Stoma site inflammation [Not Recovered/Not Resolved]
  - Parkinson^s disease [Unknown]
  - Sleep apnoea syndrome [Not Recovered/Not Resolved]
  - Cognitive disorder [Not Recovered/Not Resolved]
  - Malaise [Not Recovered/Not Resolved]
  - Freezing phenomenon [Recovered/Resolved]
  - Dizziness [Recovering/Resolving]
  - Gait inability [Unknown]
  - Emotional disorder [Not Recovered/Not Resolved]
  - Speech disorder [Not Recovered/Not Resolved]
  - Catheter site infection [Unknown]
  - Loss of personal independence in daily activities [Not Recovered/Not Resolved]
  - Dystonia [Not Recovered/Not Resolved]
  - Muscle rigidity [Not Recovered/Not Resolved]
  - Dementia [Not Recovered/Not Resolved]
  - On and off phenomenon [Not Recovered/Not Resolved]
  - Therapeutic product effect delayed [Recovered/Resolved]
  - Stoma site erythema [Unknown]
  - Freezing phenomenon [Not Recovered/Not Resolved]
  - Stoma site discharge [Not Recovered/Not Resolved]
  - Poor quality sleep [Not Recovered/Not Resolved]
  - Underdose [Not Recovered/Not Resolved]
  - Listless [Not Recovered/Not Resolved]
  - Unevaluable event [Unknown]
  - Adverse drug reaction [Unknown]
  - Stress [Not Recovered/Not Resolved]
  - Hallucination [Recovered/Resolved]
  - Muscle spasms [Not Recovered/Not Resolved]
  - Infrequent bowel movements [Unknown]
  - Abnormal faeces [Unknown]
  - Reduced facial expression [Not Recovered/Not Resolved]
  - Gait disturbance [Not Recovered/Not Resolved]
  - Dyskinesia [Not Recovered/Not Resolved]
  - Therapeutic product effect decreased [Recovered/Resolved]

NARRATIVE: CASE EVENT DATE: 2017
